FAERS Safety Report 4993207-6 (Version None)
Quarter: 2006Q1

REPORT INFORMATION
  Report Type: 
  Country: None (occurrence: None)
  Receive Date: 20060313
  Receipt Date: 20060124
  Transmission Date: 20060701
  Serious: No
  Sender: FDA-Public Use
  Company Number: 2005-BP-20873BP

PATIENT
  Age: 74 Year
  Sex: Female

DRUGS (6)
  1. SPIRIVA [Suspect]
     Indication: CHRONIC OBSTRUCTIVE PULMONARY DISEASE
     Dosage: 18 MCG (18 MCG, 1 DAILY), IH
     Route: 055
     Dates: start: 20050201
  2. SPIRIVA [Suspect]
  3. ALBUTEROL [Concomitant]
  4. IPRATROBIUM BROMIDE (IPRATOPIUM BROMIDE) [Concomitant]
  5. VITAMINS (VITAMINS) [Concomitant]
  6. ASPIRIN [Concomitant]

REACTIONS (2)
  - DYSGEUSIA [None]
  - DYSPNOEA [None]
